FAERS Safety Report 10226940 (Version 1)
Quarter: 2014Q2

REPORT INFORMATION
  Report Type: Spontaneous
  Country: US (occurrence: US)
  Receive Date: 20140610
  Receipt Date: 20140610
  Transmission Date: 20141212
  Serious: No
  Sender: FDA-Public Use
  Company Number: US-TEVA-476305USA

PATIENT
  Age: 18 Year
  Sex: Female

DRUGS (1)
  1. QUARTETTE [Suspect]
     Route: 048
     Dates: start: 201401

REACTIONS (1)
  - Vaginal haemorrhage [Not Recovered/Not Resolved]
